FAERS Safety Report 22248100 (Version 1)
Quarter: 2023Q2

REPORT INFORMATION
  Report Type: Spontaneous
  Country: US (occurrence: US)
  Receive Date: 20230425
  Receipt Date: 20230425
  Transmission Date: 20230721
  Serious: Yes (Other)
  Sender: FDA-Public Use
  Company Number: US-PFIZER INC-PV202300073627

PATIENT
  Age: 56 Year
  Sex: Male

DRUGS (1)
  1. XELJANZ XR [Suspect]
     Active Substance: TOFACITINIB CITRATE
     Indication: Rheumatoid arthritis
     Dosage: 11 MG, DAILY
     Route: 048
     Dates: start: 2017

REACTIONS (9)
  - Synovial cyst [Unknown]
  - Postoperative wound infection [Unknown]
  - Nerve injury [Unknown]
  - Tendon injury [Unknown]
  - Mobility decreased [Unknown]
  - Procedural pain [Unknown]
  - Scar [Unknown]
  - Joint range of motion decreased [Unknown]
  - Post procedural complication [Unknown]

NARRATIVE: CASE EVENT DATE: 20170101
